FAERS Safety Report 14369860 (Version 1)
Quarter: 2018Q1

REPORT INFORMATION
  Report Type: Spontaneous
  Country: US (occurrence: US)
  Receive Date: 20180110
  Receipt Date: 20180110
  Transmission Date: 20180509
  Serious: No
  Sender: FDA-Public Use
  Company Number: US-DRREDDYS-USA/USA/17/0091679

PATIENT
  Age: 54 Year
  Sex: Male

DRUGS (2)
  1. NICOTINE. [Suspect]
     Active Substance: NICOTINE
     Indication: SMOKING CESSATION THERAPY
     Route: 062
  2. NICOTINE. [Suspect]
     Active Substance: NICOTINE
     Route: 062

REACTIONS (5)
  - Application site burn [Recovering/Resolving]
  - Scar [Recovering/Resolving]
  - Scab [Recovering/Resolving]
  - Product adhesion issue [Unknown]
  - Pruritus [Recovering/Resolving]
